FAERS Safety Report 17084689 (Version 1)
Quarter: 2019Q4

REPORT INFORMATION
  Report Type: Spontaneous
  Country: US (occurrence: US)
  Receive Date: 20191127
  Receipt Date: 20191127
  Transmission Date: 20200122
  Serious: Yes (Death, Hospitalization, Other)
  Sender: FDA-Public Use
  Company Number: US-TEVA-2019-US-1142635

PATIENT
  Sex: Female

DRUGS (7)
  1. FIORICET [Suspect]
     Active Substance: ACETAMINOPHEN\BUTALBITAL\CAFFEINE
     Route: 065
  2. FIORICET [Suspect]
     Active Substance: ACETAMINOPHEN\BUTALBITAL\CAFFEINE
     Route: 065
  3. OXYCONTIN [Suspect]
     Active Substance: OXYCODONE HYDROCHLORIDE
     Route: 065
  4. GABAPENTIN TEVA [Suspect]
     Active Substance: GABAPENTIN
     Route: 065
  5. PERCOCET [Suspect]
     Active Substance: ACETAMINOPHEN\OXYCODONE HYDROCHLORIDE
     Route: 065
  6. NEURONTIN [Suspect]
     Active Substance: GABAPENTIN
     Route: 065
  7. TRAZODONE [Suspect]
     Active Substance: TRAZODONE HYDROCHLORIDE
     Route: 065

REACTIONS (10)
  - Fall [Fatal]
  - Lower limb fracture [Unknown]
  - Cardiac failure [Fatal]
  - Spinal fracture [Unknown]
  - Craniocerebral injury [Unknown]
  - Wrist fracture [Unknown]
  - Multiple fractures [Unknown]
  - Cervical vertebral fracture [Unknown]
  - Overdose [Unknown]
  - Road traffic accident [Unknown]
